FAERS Safety Report 5288210-5 (Version None)
Quarter: 2007Q1

REPORT INFORMATION
  Report Type: 
  Country: None (occurrence: None)
  Receive Date: 20070116
  Receipt Date: 20060914
  Transmission Date: 20070707
  Serious: No
  Sender: FDA-Public Use
  Company Number: FEI2006-1296

PATIENT
  Age: 46 Year
  Sex: Female
  Weight: 64.4108 kg

DRUGS (4)
  1. INTRAUTERINE COPPER CONTRACEPTIVE [Suspect]
     Indication: CONTRACEPTION
     Dosage: INTRA-UTERINE
     Route: 015
     Dates: start: 20030804, end: 20060822
  2. CALCIUM (CALCIUM) [Concomitant]
  3. PREMPHASE (PROVELL-A-14) (TABLETS) [Concomitant]
  4. BONIVA (IBANDRONATE SODIUM) (PILL) [Concomitant]

REACTIONS (1)
  - IUCD COMPLICATION [None]
